FAERS Safety Report 18571090 (Version 1)
Quarter: 2020Q4

REPORT INFORMATION
  Report Type: Spontaneous
  Country: US (occurrence: US)
  Receive Date: 20201201
  Receipt Date: 20201201
  Transmission Date: 20210114
  Serious: Yes (Life-Threatening)
  Sender: FDA-Public Use
  Company Number: None

PATIENT
  Age: 38 Year
  Sex: Female
  Weight: 86.18 kg

DRUGS (3)
  1. MELATONIN [Concomitant]
     Active Substance: MELATONIN
  2. JUNEL FE 1/20 [Suspect]
     Active Substance: ETHINYL ESTRADIOL\NORETHINDRONE ACETATE
     Dosage: ?          OTHER STRENGTH:1/20;?
  3. HYDROXYZINE PAM [Concomitant]
     Active Substance: HYDROXYZINE PAMOATE

REACTIONS (4)
  - Dysmenorrhoea [None]
  - Menorrhagia [None]
  - Polymenorrhoea [None]
  - Pregnancy on oral contraceptive [None]

NARRATIVE: CASE EVENT DATE: 20200920
